FAERS Safety Report 17695421 (Version 3)
Quarter: 2021Q2

REPORT INFORMATION
  Report Type: Spontaneous
  Country: US (occurrence: US)
  Receive Date: 20200422
  Receipt Date: 20210416
  Transmission Date: 20210716
  Serious: Yes (Other)
  Sender: FDA-Public Use
  Company Number: US-ASTRAZENECA-2020SE51881

PATIENT
  Age: 562 Month
  Sex: Female

DRUGS (35)
  1. ISOSORBIDE. [Concomitant]
     Active Substance: ISOSORBIDE
  2. ESCITALOPRAM [Concomitant]
     Active Substance: ESCITALOPRAM OXALATE
  3. ATORVASTATIN [Concomitant]
     Active Substance: ATORVASTATIN
  4. AMLODIPINE BESYLATE. [Concomitant]
     Active Substance: AMLODIPINE BESYLATE
  5. VITAMIN D [Concomitant]
     Active Substance: VITAMIN D NOS
  6. DIVON [Concomitant]
  7. POTASSIUM [Concomitant]
     Active Substance: POTASSIUM
  8. NIFEDICAL XL [Concomitant]
     Active Substance: NIFEDIPINE
  9. SPIRONOLACTONE. [Concomitant]
     Active Substance: SPIRONOLACTONE
  10. OXYCODONE [Concomitant]
     Active Substance: OXYCODONE
  11. HYDRALAZINE [Concomitant]
     Active Substance: HYDRALAZINE HYDROCHLORIDE
  12. CARVEDILOL. [Concomitant]
     Active Substance: CARVEDILOL
  13. TERCONAZOLE. [Concomitant]
     Active Substance: TERCONAZOLE
  14. FUROSEMIDE. [Concomitant]
     Active Substance: FUROSEMIDE
  15. ROXICET [Concomitant]
     Active Substance: ACETAMINOPHEN\OXYCODONE HYDROCHLORIDE
  16. WARFARIN [Concomitant]
     Active Substance: WARFARIN
  17. VYTORIN [Concomitant]
     Active Substance: EZETIMIBE\SIMVASTATIN
  18. LEVEMIR [Concomitant]
     Active Substance: INSULIN DETEMIR
  19. IRON [Concomitant]
     Active Substance: IRON
  20. HYDRALAZINE HYDROCHLORIDE. [Concomitant]
     Active Substance: HYDRALAZINE HYDROCHLORIDE
  21. HUMALOG [Concomitant]
     Active Substance: INSULIN LISPRO
  22. LISINOPRIL. [Concomitant]
     Active Substance: LISINOPRIL
  23. METOLAZONE. [Concomitant]
     Active Substance: METOLAZONE
  24. CALCIUM ACETATE. [Concomitant]
     Active Substance: CALCIUM ACETATE
  25. DIOVAN [Concomitant]
     Active Substance: VALSARTAN
  26. CIPROFLOXACIN. [Concomitant]
     Active Substance: CIPROFLOXACIN
  27. TRAMADOL. [Concomitant]
     Active Substance: TRAMADOL
  28. COMBIVENT [Concomitant]
     Active Substance: ALBUTEROL SULFATE\IPRATROPIUM BROMIDE
  29. ONDANSETRON [Concomitant]
     Active Substance: ONDANSETRON
  30. DIGOXIN. [Concomitant]
     Active Substance: DIGOXIN
  31. PRILOSEC OTC [Suspect]
     Active Substance: OMEPRAZOLE MAGNESIUM
     Dosage: FOR VARIOUS DATES AND YEARS
     Route: 048
  32. AMLODIPINE [Concomitant]
     Active Substance: AMLODIPINE BESYLATE
  33. LEVOFLOXACIN. [Concomitant]
     Active Substance: LEVOFLOXACIN
  34. NITROFURANTOIN. [Concomitant]
     Active Substance: NITROFURANTOIN
  35. IMDUR [Concomitant]
     Active Substance: ISOSORBIDE MONONITRATE

REACTIONS (7)
  - Hyperparathyroidism secondary [Unknown]
  - Renal tubular necrosis [Unknown]
  - Nephrogenic anaemia [Unknown]
  - Chronic kidney disease [Unknown]
  - Renal failure [Unknown]
  - Acute kidney injury [Unknown]
  - Rebound acid hypersecretion [Unknown]

NARRATIVE: CASE EVENT DATE: 201006
